FAERS Safety Report 4920494-2 (Version None)
Quarter: 2006Q1

REPORT INFORMATION
  Report Type: 
  Country: None (occurrence: None)
  Receive Date: 20060223
  Receipt Date: 20051011
  Transmission Date: 20060701
  Serious: Yes (Hospitalization)
  Sender: FDA-Public Use
  Company Number: US-MERCK-0510USA06913

PATIENT
  Age: 66 Year
  Sex: Female
  Weight: 68 kg

DRUGS (6)
  1. VIOXX [Suspect]
     Indication: ARTHRITIS
     Route: 048
     Dates: start: 20000502, end: 20040701
  2. VIOXX [Suspect]
     Indication: KNEE OPERATION
     Route: 048
     Dates: start: 20000502, end: 20040701
  3. AMITRIPTYLIN [Concomitant]
     Route: 065
  4. TEMAZE [Concomitant]
     Route: 065
  5. PRAVACHOL [Concomitant]
     Route: 065
  6. CHLORDIAZEPOXIDE [Concomitant]
     Route: 065

REACTIONS (32)
  - ANAEMIA [None]
  - ANGINA UNSTABLE [None]
  - BLOOD CREATININE INCREASED [None]
  - BLOOD PRESSURE INCREASED [None]
  - BLOOD PRESSURE SYSTOLIC INCREASED [None]
  - CARDIOMYOPATHY [None]
  - CAROTID BRUIT [None]
  - CERVICOBRACHIAL SYNDROME [None]
  - CHEST DISCOMFORT [None]
  - CHEST PAIN [None]
  - CORONARY ARTERY DISEASE [None]
  - CORONARY ARTERY RESTENOSIS [None]
  - CORONARY ARTERY STENOSIS [None]
  - DISEASE RECURRENCE [None]
  - DRUG INEFFECTIVE [None]
  - EJECTION FRACTION DECREASED [None]
  - GASTRITIS EROSIVE [None]
  - HAEMATOCRIT DECREASED [None]
  - HYPERTENSION [None]
  - HYPERTENSIVE CRISIS [None]
  - INJURY [None]
  - INTERMITTENT CLAUDICATION [None]
  - MYOCARDIAL INFARCTION [None]
  - OESOPHAGEAL DISORDER [None]
  - OESOPHAGITIS [None]
  - PAIN IN JAW [None]
  - RENAL FAILURE [None]
  - RENAL FAILURE CHRONIC [None]
  - SCAR [None]
  - ULCER [None]
  - ULCER HAEMORRHAGE [None]
  - VENTRICULAR HYPERTROPHY [None]
